FAERS Safety Report 7942571-4 (Version None)
Quarter: 2011Q4

REPORT INFORMATION
  Report Type: 
  Country: None (occurrence: None)
  Receive Date: 20111128
  Receipt Date: 20110908
  Transmission Date: 20120403
  Serious: Yes (Hospitalization, Other)
  Sender: FDA-Public Use
  Company Number: FR-GLAXOSMITHKLINE-B0764895A

PATIENT
  Sex: Female

DRUGS (4)
  1. OXAZEPAM [Suspect]
     Indication: PRODUCT USED FOR UNKNOWN INDICATION
     Dosage: 3TAB PER DAY
     Route: 048
     Dates: start: 20110307, end: 20110817
  2. PENTASA [Suspect]
     Indication: CROHN'S DISEASE
     Dosage: 2G PER DAY
     Route: 048
     Dates: start: 19970101, end: 20110817
  3. PAROXETINE HCL [Suspect]
     Indication: PRODUCT USED FOR UNKNOWN INDICATION
     Dosage: 1TAB PER DAY
     Route: 048
     Dates: start: 20110307, end: 20110817
  4. IMURAN [Suspect]
     Indication: CROHN'S DISEASE
     Dosage: 100MG TWICE PER DAY
     Route: 048
     Dates: start: 19990201, end: 20110817

REACTIONS (3)
  - CYTOLYTIC HEPATITIS [None]
  - JAUNDICE [None]
  - OFF LABEL USE [None]
